FAERS Safety Report 10027613 (Version 2)
Quarter: 2014Q2

REPORT INFORMATION
  Report Type: Spontaneous
  Country: AU (occurrence: AU)
  Receive Date: 20140321
  Receipt Date: 20140416
  Transmission Date: 20141212
  Serious: Yes (Other)
  Sender: FDA-Public Use
  Company Number: AU-PFIZER INC-2014080773

PATIENT
  Age: 54 Year
  Sex: Male
  Weight: 102 kg

DRUGS (4)
  1. PRISTIQ [Suspect]
     Indication: DEPRESSION
     Dosage: 50 MG, UNK
     Route: 048
     Dates: start: 20131029, end: 20140323
  2. INDOCIN [Concomitant]
     Indication: GOUT
     Dosage: 25 MG, (1-2 TABLETS), 3X/DAY, AFTER FOOD
     Route: 048
     Dates: start: 20130504
  3. ALLOPURINOL [Concomitant]
     Indication: GOUT
     Dosage: 300 MG, 1X/DAY MORNING
     Route: 048
     Dates: start: 20140110
  4. CRESTOR [Concomitant]
     Indication: BLOOD CHOLESTEROL
     Dosage: 5 MG, 1X/DAY MORNING
     Route: 048
     Dates: start: 20130926

REACTIONS (9)
  - Dengue fever [Unknown]
  - Fatigue [Unknown]
  - Hyperhidrosis [Recovering/Resolving]
  - Liver function test abnormal [Unknown]
  - Anxiety [Not Recovered/Not Resolved]
  - Cyclothymic disorder [Unknown]
  - Nausea [Unknown]
  - Dizziness [Unknown]
  - Headache [Unknown]
